FAERS Safety Report 9752257 (Version 1)
Quarter: 2013Q4

REPORT INFORMATION
  Report Type: Spontaneous
  Country: MY (occurrence: MY)
  Receive Date: 20131213
  Receipt Date: 20131213
  Transmission Date: 20140711
  Serious: Yes (Other)
  Sender: FDA-Public Use
  Company Number: MY-009507513-1312MYS001031

PATIENT
  Age: 28 Year
  Sex: Female

DRUGS (2)
  1. TIENAM [Suspect]
     Indication: NOSOCOMIAL INFECTION
     Dosage: 0.02 G, QD
     Route: 042
  2. TIENAM [Suspect]
     Indication: SEPSIS

REACTIONS (1)
  - Adverse event [Not Recovered/Not Resolved]
